FAERS Safety Report 7940663-7 (Version None)
Quarter: 2011Q4

REPORT INFORMATION
  Report Type: 
  Country: None (occurrence: None)
  Receive Date: 20111114
  Receipt Date: 20100929
  Transmission Date: 20120403
  Serious: Yes (Death)
  Sender: FDA-Public Use
  Company Number: 2010S1001366

PATIENT
  Age: 71 Year
  Sex: Female
  Weight: 52 kg

DRUGS (7)
  1. ZOSYN [Concomitant]
  2. VANCOMYCIN [Concomitant]
  3. RIFAMPIN [Concomitant]
  4. CUBICIN [Suspect]
     Indication: ENDOCARDITIS
     Dosage: 5.8 MG/KG;Q48H;IV
     Route: 042
     Dates: start: 20100827, end: 20100904
  5. CUBICIN [Suspect]
     Indication: PNEUMONIA
     Dosage: 5.8 MG/KG;Q48H;IV
     Route: 042
     Dates: start: 20100827, end: 20100904
  6. CUBICIN [Suspect]
     Indication: BACTERAEMIA
     Dosage: 5.8 MG/KG;Q48H;IV
     Route: 042
     Dates: start: 20100827, end: 20100904
  7. GENTAMICIN [Concomitant]

REACTIONS (4)
  - SEPSIS [None]
  - ENDOCARDITIS [None]
  - CARDIAC FAILURE CHRONIC [None]
  - DRUG INEFFECTIVE [None]
